FAERS Safety Report 9067587 (Version 1)
Quarter: 2013Q1

REPORT INFORMATION
  Report Type: Spontaneous
  Country: US (occurrence: US)
  Receive Date: 20130206
  Receipt Date: 20130206
  Transmission Date: 20140127
  Serious: Yes (Other)
  Sender: FDA-Public Use
  Company Number: US-BAYER-2013-003960

PATIENT
  Age: 58 Year
  Sex: Male
  Weight: 83.6 kg

DRUGS (2)
  1. NEXAVAR [Suspect]
     Indication: HEPATOCELLULAR CARCINOMA
     Dosage: 400 MG, BID
     Route: 048
     Dates: start: 20121121, end: 20121218
  2. INVESTIGATIONAL PRODUCT [Suspect]
     Indication: HEPATOCELLULAR CARCINOMA
     Dosage: 1600 MG EVERY TWO WEEK
     Route: 042
     Dates: start: 20121120, end: 20121204

REACTIONS (1)
  - Hyponatraemia [Not Recovered/Not Resolved]
